FAERS Safety Report 8792609 (Version 1)
Quarter: 2012Q4

REPORT INFORMATION
  Report Type: 
  Country: US (occurrence: US)
  Receive Date: 20120918
  Receipt Date: 20120918
  Transmission Date: 20130627
  Serious: Yes (Life-Threatening, Disabling, Other)
  Sender: FDA-Public Use
  Company Number: US-009507513-1209USA006650

PATIENT

DRUGS (1)
  1. CORICIDIN HBP COUGH AND COLD [Suspect]
     Dosage: UNK, Unknown

REACTIONS (8)
  - Dependence [Unknown]
  - Convulsion [Unknown]
  - Overdose [Unknown]
  - Liver injury [Unknown]
  - Renal injury [Unknown]
  - Memory impairment [Unknown]
  - Hyperhidrosis [Unknown]
  - Erythema [Unknown]
